FAERS Safety Report 8443744-7 (Version None)
Quarter: 2012Q2

REPORT INFORMATION
  Report Type: 
  Country: None (occurrence: None)
  Receive Date: 20120618
  Receipt Date: 20120608
  Transmission Date: 20120825
  Serious: Yes (Other)
  Sender: FDA-Public Use
  Company Number: DE-ELI_LILLY_AND_COMPANY-DE201206002609

PATIENT
  Sex: Male

DRUGS (3)
  1. SIMVASTATIN [Concomitant]
  2. CANDESARTAN CILEXETIL [Concomitant]
  3. ZYPREXA [Suspect]
     Dosage: 5 MG, QD
     Route: 048

REACTIONS (1)
  - CHRONIC LYMPHOCYTIC LEUKAEMIA [None]
